FAERS Safety Report 7183388-0 (Version None)
Quarter: 2010Q4

REPORT INFORMATION
  Report Type: 
  Country: None (occurrence: None)
  Receive Date: 20101220
  Receipt Date: 20101220
  Transmission Date: 20110411
  Serious: Yes (Hospitalization)
  Sender: FDA-Public Use
  Company Number: None

PATIENT
  Age: 60 Year
  Sex: Male
  Weight: 177 kg

DRUGS (18)
  1. COUMADIN [Suspect]
     Indication: ATRIAL FIBRILLATION
     Dosage: 15MG ALT 30MG ALTERNATING PO CHRONIC W/RECENT CHANGES
     Route: 048
  2. NAPROXEN [Suspect]
     Indication: OSTEOARTHRITIS
     Dosage: 500MG BID PO CHRONIC
     Route: 048
  3. LIPITOR [Concomitant]
  4. METFORMIN HCL [Concomitant]
  5. EUCERIN [Concomitant]
  6. LOPRESSOR [Concomitant]
  7. POTASSIUM CHLORIDE [Concomitant]
  8. BETADINE [Concomitant]
  9. M.V.I. [Concomitant]
  10. ASCORBIC ACID [Concomitant]
  11. LOTREL [Concomitant]
  12. NAPROXEN [Concomitant]
  13. DUONEB [Concomitant]
  14. HYDRALAZINE [Concomitant]
  15. NORCO [Concomitant]
  16. CLONIDINE [Concomitant]
  17. LASIX [Concomitant]
  18. MIRALAX [Concomitant]

REACTIONS (2)
  - DIVERTICULUM INTESTINAL HAEMORRHAGIC [None]
  - GASTRITIS EROSIVE [None]
